FAERS Safety Report 8248155-5 (Version None)
Quarter: 2012Q1

REPORT INFORMATION
  Report Type: 
  Country: None (occurrence: None)
  Receive Date: 20120330
  Receipt Date: 20120322
  Transmission Date: 20120608
  Serious: Yes (Hospitalization)
  Sender: FDA-Public Use
  Company Number: CA-ABBOTT-12P-028-0912409-01

PATIENT
  Sex: Female

DRUGS (18)
  1. ELAVIL [Concomitant]
     Indication: ABDOMINAL PAIN
     Dates: start: 20061101
  2. TYLENOL W/ CODEINE [Concomitant]
     Indication: HEADACHE
     Dates: start: 20100218
  3. HUMIRA [Suspect]
     Route: 058
     Dates: start: 20090801, end: 20090801
  4. CALCIUM WITH VITAMIN D [Concomitant]
     Indication: PROPHYLAXIS
     Dates: start: 20061101
  5. HUMIRA [Suspect]
     Route: 058
     Dates: start: 20090901, end: 20110906
  6. BENTYLOL [Concomitant]
     Indication: ABDOMINAL PAIN
     Dates: start: 20041001
  7. FOSAMAX [Concomitant]
     Indication: OSTEOPOROSIS PROPHYLAXIS
     Dates: start: 20110527
  8. PANTOPRAZOLE SODIUM [Concomitant]
     Indication: DYSPEPSIA
     Dates: start: 20110517
  9. GLAXAL BASE [Concomitant]
     Indication: DRY SKIN
     Dates: start: 20100712
  10. IBUPROFEN [Concomitant]
     Indication: ABDOMINAL PAIN
     Dates: start: 20100712
  11. IMMUNOSUPPRESSANTS [Concomitant]
     Indication: CROHN'S DISEASE
  12. NASONEX [Concomitant]
     Indication: RHINITIS
     Dosage: 1 SPRAY BID
     Dates: start: 20100408
  13. HUMIRA [Suspect]
     Indication: CROHN'S DISEASE
     Route: 058
     Dates: start: 20090811, end: 20090811
  14. IMURAN [Concomitant]
     Indication: CROHN'S DISEASE
     Dates: start: 20110818
  15. REMICADE [Concomitant]
     Indication: CROHN'S DISEASE
  16. CORTICOSTEROIDS [Concomitant]
     Indication: CROHN'S DISEASE
  17. PREDNISONE TAB [Concomitant]
     Indication: CROHN'S DISEASE
     Dosage: TAPERING DOSE
     Dates: start: 20110901
  18. SERAX [Concomitant]
     Indication: INSOMNIA
     Dates: start: 20110516

REACTIONS (1)
  - ILEUS [None]
